FAERS Safety Report 5323494-6 (Version None)
Quarter: 2007Q2

REPORT INFORMATION
  Report Type: 
  Country: None (occurrence: None)
  Receive Date: 20070514
  Receipt Date: 20070509
  Transmission Date: 20071010
  Serious: Yes (Death, Hospitalization)
  Sender: FDA-Public Use
  Company Number: ES-NOVOPROD-263571

PATIENT
  Age: 74 Year
  Sex: Male

DRUGS (5)
  1. NOVORAPID FLEXPEN [Suspect]
     Indication: DRUG USE FOR UNKNOWN INDICATION
     Dates: start: 20050602
  2. DIGOXIN [Concomitant]
  3. FUROSEMIDA                         /00032601/ [Concomitant]
  4. ENALAPRIL [Concomitant]
  5. LOSARTAN POSTASSIUM [Concomitant]

REACTIONS (2)
  - CEREBROVASCULAR DISORDER [None]
  - HYPOGLYCAEMIA [None]
